FAERS Safety Report 7352929-2 (Version None)
Quarter: 2011Q1

REPORT INFORMATION
  Report Type: 
  Country: None (occurrence: None)
  Receive Date: 20110315
  Receipt Date: 20110302
  Transmission Date: 20110831
  Serious: Yes (Other)
  Sender: FDA-Public Use
  Company Number: PHHY2010BR58670

PATIENT
  Sex: Female

DRUGS (5)
  1. SIMVASTATIN [Concomitant]
     Indication: CORONARY REVASCULARISATION
     Dosage: 1 TABLET A DAY
     Route: 048
     Dates: start: 20000101
  2. A.A.S. [Concomitant]
     Indication: CORONARY REVASCULARISATION
     Dosage: 1 TABLET A DAY
     Route: 048
     Dates: start: 20000101
  3. MONOCORDIL [Concomitant]
     Indication: CORONARY REVASCULARISATION
     Dosage: 1 TABLET A DAY
     Dates: start: 20000101
  4. DIOVAN [Suspect]
     Dosage: 320 MG, UNK
     Route: 048
     Dates: start: 20100901
  5. DIOVAN [Suspect]
     Indication: HYPERTENSION
     Dosage: 1 TABLET (80 MG) A DAY
     Route: 048
     Dates: start: 20060101

REACTIONS (1)
  - BLOOD PRESSURE INCREASED [None]
